FAERS Safety Report 7894588-6 (Version None)
Quarter: 2011Q4

REPORT INFORMATION
  Report Type: 
  Country: None (occurrence: None)
  Receive Date: 20111106
  Receipt Date: 20110816
  Transmission Date: 20120403
  Serious: No
  Sender: FDA-Public Use
  Company Number: US-AMGEN-USASP2011033887

PATIENT
  Age: 58 Year
  Sex: Female

DRUGS (2)
  1. ENBREL [Suspect]
     Indication: RHEUMATOID ARTHRITIS
     Dosage: 50 MG, QWK
     Dates: start: 19980101
  2. ALEVE [Concomitant]
     Dosage: UNK

REACTIONS (7)
  - HYPOAESTHESIA [None]
  - BACK PAIN [None]
  - VISION BLURRED [None]
  - INJECTION SITE PAIN [None]
  - MUSCULOSKELETAL PAIN [None]
  - ARTHRALGIA [None]
  - PAIN IN EXTREMITY [None]
